FAERS Safety Report 6521433-3 (Version None)
Quarter: 2009Q4

REPORT INFORMATION
  Report Type: 
  Country: None (occurrence: None)
  Receive Date: 20091230
  Receipt Date: 20091221
  Transmission Date: 20100525
  Serious: Yes (Other)
  Sender: FDA-Public Use
  Company Number: JP-ROCHE-676017

PATIENT
  Sex: Male
  Weight: 33 kg

DRUGS (4)
  1. TAMIFLU [Suspect]
     Indication: INFLUENZA
     Dosage: DRUG NAME REPORTED AS: TAMIFLU DRY SYRUP 3% (OSELTAMIVIR)
     Route: 048
     Dates: start: 20091110, end: 20091101
  2. MAO-TO [Concomitant]
     Dosage: DRUG REPORTED AS (MAO-TO)
     Route: 048
     Dates: start: 20091110
  3. CLARITH [Concomitant]
     Dosage: DRUG REPORTED AS CLARITH:DRYSYRUP(CLARITHROMYCIN)
     Route: 048
     Dates: start: 20091110
  4. METHISTA [Concomitant]
     Dosage: DRUG REPORTED AS METHISTA(CARBOCISTEINE)
     Route: 048
     Dates: start: 20091110

REACTIONS (1)
  - ABNORMAL BEHAVIOUR [None]
